FAERS Safety Report 14632611 (Version 2)
Quarter: 2018Q3

REPORT INFORMATION
  Report Type: Spontaneous
  Country: US (occurrence: US)
  Receive Date: 20180313
  Receipt Date: 20180716
  Transmission Date: 20181010
  Serious: No
  Sender: FDA-Public Use
  Company Number: US-MYLANLABS-2018M1012410

PATIENT
  Age: 86 Year
  Sex: Female

DRUGS (1)
  1. CLOBETASOL PROPIONATE FOAM [Suspect]
     Active Substance: CLOBETASOL PROPIONATE
     Indication: PSORIASIS
     Dosage: UNK
     Route: 061
     Dates: start: 20180131, end: 20180210

REACTIONS (2)
  - Application site burn [Not Recovered/Not Resolved]
  - Wound [Not Recovered/Not Resolved]

NARRATIVE: CASE EVENT DATE: 20180131
